FAERS Safety Report 6965489-2 (Version None)
Quarter: 2010Q3

REPORT INFORMATION
  Report Type: 
  Country: None (occurrence: None)
  Receive Date: 20100903
  Receipt Date: 20100826
  Transmission Date: 20110219
  Serious: Yes (Hospitalization)
  Sender: FDA-Public Use
  Company Number: B0672944A

PATIENT
  Sex: Female

DRUGS (9)
  1. ZELITREX [Suspect]
     Indication: HERPES ZOSTER
     Dosage: 1500MG PER DAY
     Route: 065
     Dates: start: 20100814, end: 20100816
  2. VACCINE [Concomitant]
  3. RAMIPRIL [Concomitant]
  4. LANOXIN [Concomitant]
  5. SIMVASTATIN [Concomitant]
  6. VENOFER [Concomitant]
  7. FOSRENOL [Concomitant]
  8. LERDIP [Concomitant]
  9. MARCUMAR [Concomitant]

REACTIONS (1)
  - DELIRIUM [None]
